FAERS Safety Report 20993641 (Version 1)
Quarter: 2022Q2

REPORT INFORMATION
  Report Type: Spontaneous
  Country: FR (occurrence: FR)
  Receive Date: 20220622
  Receipt Date: 20220622
  Transmission Date: 20220721
  Serious: Yes (Other)
  Sender: FDA-Public Use
  Company Number: FR-JNJFOC-20220611527

PATIENT
  Age: 58 Year
  Sex: Male

DRUGS (2)
  1. SIMPONI [Suspect]
     Active Substance: GOLIMUMAB
     Indication: Product used for unknown indication
     Route: 058
     Dates: start: 2020
  2. SIMPONI [Suspect]
     Active Substance: GOLIMUMAB
     Dosage: REINTRODUCED ON 08-JUN-2022
     Route: 058

REACTIONS (5)
  - Blindness [Unknown]
  - Inflammation [Unknown]
  - Drug delivery system malfunction [Unknown]
  - Product dose omission issue [Unknown]
  - Accidental exposure to product [Unknown]

NARRATIVE: CASE EVENT DATE: 20220530
